FAERS Safety Report 8274246-9 (Version None)
Quarter: 2012Q2

REPORT INFORMATION
  Report Type: 
  Country: None (occurrence: None)
  Receive Date: 20120411
  Receipt Date: 20120330
  Transmission Date: 20120825
  Serious: Yes (Other)
  Sender: FDA-Public Use
  Company Number: US-JNJFOC-20120400986

PATIENT
  Sex: Female
  Weight: 71.22 kg

DRUGS (3)
  1. REMICADE [Suspect]
     Indication: COLITIS
     Route: 042
     Dates: start: 20110301, end: 20111114
  2. REMICADE [Suspect]
     Indication: CROHN'S DISEASE
     Route: 042
     Dates: start: 20110301, end: 20111114
  3. CORGARD [Concomitant]
     Indication: LONG QT SYNDROME
     Route: 048
     Dates: start: 20020101

REACTIONS (5)
  - INTESTINAL OBSTRUCTION [None]
  - STRESS [None]
  - DEPRESSION [None]
  - DYSPLASIA [None]
  - INSOMNIA [None]
